FAERS Safety Report 4383948-6 (Version None)
Quarter: 2004Q2

REPORT INFORMATION
  Report Type: 
  Country: None (occurrence: None)
  Receive Date: 20040624
  Receipt Date: 20040601
  Transmission Date: 20050107
  Serious: Yes (Other)
  Sender: FDA-Public Use
  Company Number: PHEH2004US06032

PATIENT
  Age: 68 Year
  Sex: Male
  Weight: 56 kg

DRUGS (12)
  1. ZOMETA [Suspect]
     Indication: MULTIPLE MYELOMA
     Dosage: UNK, QMO
     Route: 042
     Dates: start: 20020201, end: 20030101
  2. AREDIA [Suspect]
     Indication: MULTIPLE MYELOMA
     Dosage: UNK, QMO
     Route: 042
     Dates: start: 20000401, end: 20020101
  3. AREDIA [Suspect]
     Dates: start: 20030201
  4. AVANDIA [Concomitant]
     Indication: DIABETES MELLITUS
     Dosage: 4 MG, BID
     Dates: start: 20000501
  5. PREVACID [Concomitant]
     Indication: DYSAESTHESIA
     Dates: start: 20030501
  6. PREDNISONE [Concomitant]
     Dosage: 60 MG X 5 DAYS AND TAPER
     Dates: start: 19990201, end: 19990601
  7. PREDNISONE [Concomitant]
     Dosage: 60 MG FOR 5 DAYS AND TAPER
     Dates: start: 20010130
  8. ALKERAN [Concomitant]
     Dosage: 12 MG FOR 5 DAYS EVERY MONTH
  9. EPOGEN [Concomitant]
     Indication: ANAEMIA
     Dosage: 20,000 U EVERY WEEK FOR 3 WEEKS
     Dates: start: 19990510
  10. VINCRISTINE + ADRIAMYCIN + DEXAMETHASONE [Concomitant]
     Dosage: 4 DAYS EVERY MONTH
     Dates: start: 20000701, end: 20000901
  11. NEUPOGEN [Concomitant]
     Dates: start: 20000901
  12. THALIDOMIDE [Concomitant]
     Dosage: 50 MG, QD
     Route: 042
     Dates: start: 20000901

REACTIONS (7)
  - BONE DISORDER [None]
  - IMPAIRED HEALING [None]
  - OSTEOMYELITIS [None]
  - OSTEOMYELITIS DRAINAGE [None]
  - RADIOTHERAPY [None]
  - TOOTH ABSCESS [None]
  - TOOTH EXTRACTION [None]
